FAERS Safety Report 19583990 (Version 1)
Quarter: 2021Q3

REPORT INFORMATION
  Report Type: Spontaneous
  Country: US (occurrence: US)
  Receive Date: 20210720
  Receipt Date: 20210720
  Transmission Date: 20211014
  Serious: No
  Sender: FDA-Public Use
  Company Number: US-JOURNEY MEDICAL CORPORATION-2021JNY00006

PATIENT
  Sex: Female

DRUGS (1)
  1. QBREXZA [Suspect]
     Active Substance: GLYCOPYRRONIUM TOSYLATE

REACTIONS (2)
  - Vision blurred [Unknown]
  - Mydriasis [Unknown]
